FAERS Safety Report 6373448-6 (Version None)
Quarter: 2009Q3

REPORT INFORMATION
  Report Type: 
  Country: None (occurrence: None)
  Receive Date: 20090924
  Receipt Date: 20090317
  Transmission Date: 20100115
  Serious: No
  Sender: FDA-Public Use
  Company Number: US-ASTRAZENECA-2009UW07016

PATIENT
  Sex: Female

DRUGS (5)
  1. SEROQUEL [Suspect]
     Indication: BIPOLAR DISORDER
     Route: 048
     Dates: start: 20040101
  2. SEROQUEL [Suspect]
     Route: 048
  3. SEROQUEL [Suspect]
     Route: 048
  4. LAMICTAL [Concomitant]
  5. VELPATCH ESTROGEN PATCH [Concomitant]

REACTIONS (2)
  - FEELING ABNORMAL [None]
  - THYROID NEOPLASM [None]
